FAERS Safety Report 13346229 (Version 2)
Quarter: 2017Q2

REPORT INFORMATION
  Report Type: Spontaneous
  Country: JP (occurrence: JP)
  Receive Date: 20170317
  Receipt Date: 20170425
  Transmission Date: 20170830
  Serious: Yes (Hospitalization, Other)
  Sender: FDA-Public Use
  Company Number: JP-GLAXOSMITHKLINE-JP2017JPN035173

PATIENT
  Age: 0 Year
  Sex: Female
  Weight: 3.52 kg

DRUGS (2)
  1. LAMICTAL [Suspect]
     Active Substance: LAMOTRIGINE
     Dosage: 100 MG, BID
     Route: 064
     Dates: end: 20170208
  2. TEGRETOL [Suspect]
     Active Substance: CARBAMAZEPINE
     Dosage: 600 MG, 1D
     Route: 064
     Dates: end: 20170208

REACTIONS (9)
  - Peripheral coldness [Recovering/Resolving]
  - Vomiting [Recovering/Resolving]
  - Poor weight gain neonatal [Unknown]
  - Abdominal distension [Unknown]
  - Nausea [Recovered/Resolved]
  - Caput succedaneum [Recovering/Resolving]
  - Foetal exposure during pregnancy [Unknown]
  - Hypocalcaemia [Recovering/Resolving]
  - Neonatal infection [Recovering/Resolving]

NARRATIVE: CASE EVENT DATE: 201702
